FAERS Safety Report 13320356 (Version 1)
Quarter: 2017Q1

REPORT INFORMATION
  Report Type: Spontaneous
  Country: CA (occurrence: CA)
  Receive Date: 20170309
  Receipt Date: 20170309
  Transmission Date: 20170428
  Serious: Yes (Hospitalization, Other)
  Sender: FDA-Public Use
  Company Number: CA-TEVA-747196ACC

PATIENT
  Age: 53 Year
  Sex: Female

DRUGS (12)
  1. CELECOXIB. [Concomitant]
     Active Substance: CELECOXIB
  2. DULOXETINE. [Concomitant]
     Active Substance: DULOXETINE
  3. ATENOLOL TABLETS, BP [Concomitant]
     Active Substance: ATENOLOL
  4. LOSARTAN. [Concomitant]
     Active Substance: LOSARTAN
  5. METFORMIN [Concomitant]
     Active Substance: METFORMIN HYDROCHLORIDE
  6. TRAZODONE [Suspect]
     Active Substance: TRAZODONE HYDROCHLORIDE
  7. NIFEDIPINE. [Concomitant]
     Active Substance: NIFEDIPINE
  8. INVOKANA [Suspect]
     Active Substance: CANAGLIFLOZIN
     Indication: TYPE 2 DIABETES MELLITUS
     Dosage: 300 MILLIGRAM DAILY;
     Route: 048
  9. GLYBURIDE. [Concomitant]
     Active Substance: GLYBURIDE
  10. INSULIN [Concomitant]
     Active Substance: INSULIN NOS
  11. LORAZEPAM. [Concomitant]
     Active Substance: LORAZEPAM
  12. QUETIAPINE. [Concomitant]
     Active Substance: QUETIAPINE

REACTIONS (14)
  - Blood pH decreased [Recovered/Resolved]
  - Diabetic ketoacidosis [Recovered/Resolved]
  - Depressed level of consciousness [Recovered/Resolved]
  - Halo vision [Recovered/Resolved]
  - Photophobia [Recovered/Resolved]
  - Vomiting [Recovered/Resolved]
  - Coordination abnormal [Recovered/Resolved]
  - Blood glucose increased [Recovered/Resolved]
  - Fatigue [Recovered/Resolved]
  - Nausea [Recovered/Resolved]
  - Blood bicarbonate decreased [Recovered/Resolved]
  - Dyspnoea [Recovered/Resolved]
  - Palpitations [Recovered/Resolved]
  - Weight decreased [Recovered/Resolved]
